FAERS Safety Report 24459474 (Version 1)
Quarter: 2024Q4

REPORT INFORMATION
  Report Type: Spontaneous
  Country: CN (occurrence: CN)
  Receive Date: 20241018
  Receipt Date: 20241018
  Transmission Date: 20250115
  Serious: No
  Sender: ROCHE
  Company Number: CN-ROCHE-3529953

PATIENT
  Age: 64 Year
  Sex: Female
  Weight: 62.0 kg

DRUGS (1)
  1. MABTHERA [Suspect]
     Active Substance: RITUXIMAB
     Indication: Follicular lymphoma
     Route: 041
     Dates: start: 20240229, end: 20240229

REACTIONS (3)
  - Infusion related reaction [Recovering/Resolving]
  - Rash pruritic [Recovering/Resolving]
  - Oral pain [Recovering/Resolving]

NARRATIVE: CASE EVENT DATE: 20240229
